FAERS Safety Report 7502740-4 (Version None)
Quarter: 2011Q2

REPORT INFORMATION
  Report Type: 
  Country: None (occurrence: None)
  Receive Date: 20110525
  Receipt Date: 20110519
  Transmission Date: 20111010
  Serious: Yes (Other)
  Sender: FDA-Public Use
  Company Number: US-PFIZER INC-2011108442

PATIENT
  Sex: Female
  Weight: 81.633 kg

DRUGS (4)
  1. COSOPT [Concomitant]
     Dosage: UNK
  2. XALATAN [Suspect]
     Indication: GLAUCOMA
     Dosage: ONE DROP RIGHT EYE, DAILY
     Route: 047
     Dates: start: 20110518
  3. LOTEMAX [Concomitant]
     Indication: EYE INFLAMMATION
     Dosage: UNK
  4. ALPHAGAN [Concomitant]
     Dosage: UNK

REACTIONS (1)
  - SWELLING [None]
